FAERS Safety Report 6047020-1 (Version None)
Quarter: 2009Q1

REPORT INFORMATION
  Report Type: 
  Country: None (occurrence: None)
  Receive Date: 20090122
  Receipt Date: 20080916
  Transmission Date: 20090719
  Serious: No
  Sender: FDA-Public Use
  Company Number: US-KINGPHARMUSA00001-K200401411

PATIENT
  Sex: Female
  Weight: 147.39 kg

DRUGS (4)
  1. TILADE [Suspect]
     Indication: ASTHMA
     Dosage: 2 PUFFS, SINGLE
     Dates: start: 20040701, end: 20040701
  2. METFORMIN [Concomitant]
     Indication: GLUCOSE TOLERANCE IMPAIRED
     Dosage: 850 MG, BID
     Route: 048
     Dates: start: 20000101
  3. LISINOPRIL [Concomitant]
     Dosage: 5 MG, QD
     Route: 048
     Dates: start: 20000101
  4. MULTIVITAMIN ^LAPPE^ [Concomitant]
     Indication: VITAMIN SUPPLEMENTATION
     Dosage: UNK, QD
     Route: 048

REACTIONS (2)
  - ALLERGY TO CHEMICALS [None]
  - FEELING HOT [None]
